FAERS Safety Report 16445224 (Version 1)
Quarter: 2019Q2

REPORT INFORMATION
  Report Type: Spontaneous
  Country: US (occurrence: US)
  Receive Date: 20190618
  Receipt Date: 20190618
  Transmission Date: 20190711
  Serious: Yes (Other)
  Sender: FDA-Public Use
  Company Number: US-KALA PHARAMACEUTICALS-2019KLA00019

PATIENT
  Sex: Female

DRUGS (3)
  1. BESIVANCE [Suspect]
     Active Substance: BESIFLOXACIN
     Dosage: UNK
  2. INVELTYS [Suspect]
     Active Substance: LOTEPREDNOL ETABONATE
     Dosage: UNK
  3. BROMSITE [Suspect]
     Active Substance: BROMFENAC SODIUM
     Dosage: UNK

REACTIONS (1)
  - Ocular toxicity [Recovered/Resolved]
